FAERS Safety Report 7395002-X (Version None)
Quarter: 2011Q1

REPORT INFORMATION
  Report Type: 
  Country: None (occurrence: None)
  Receive Date: 20110325
  Receipt Date: 20101207
  Transmission Date: 20110831
  Serious: Yes (Death, Hospitalization)
  Sender: FDA-Public Use
  Company Number: 2010SA074084

PATIENT
  Age: 62 Year
  Sex: Male

DRUGS (9)
  1. CISPLATIN [Suspect]
     Indication: NON-SMALL CELL LUNG CANCER STAGE IV
     Dosage: 75 MG,  SQUARE METER, POWDER FOR SOLUTION FOR INFUSION, INTRAVENOUS DRIP, EVERY CYCLE 16NOV2010:16NO
     Route: 041
     Dates: start: 20101116, end: 20101116
  2. SOLU-MEDROL [Concomitant]
  3. ACETAMINOPHEN [Concomitant]
  4. KYTRIL [Concomitant]
  5. XANAX [Concomitant]
  6. ZOFRAN [Concomitant]
  7. EMEND [Concomitant]
  8. NEO-CODION NN (CODEINE CAMSILATE) [Concomitant]
  9. GEMCITABINE [Suspect]
     Indication: NON-SMALL CELL LUNG CANCER STAGE IV
     Dosage: 1250 MILLIGRAM(S)/SQUARE METER, POWDER FOR SOLUTION FOR INFUSION, INTRAVENOUS DRIP, WEEKLY 16NOV2010
     Route: 041
     Dates: start: 20101123, end: 20101123

REACTIONS (2)
  - SEPTIC SHOCK [None]
  - FEBRILE BONE MARROW APLASIA [None]
